FAERS Safety Report 9470612 (Version 2)
Quarter: 2013Q4

REPORT INFORMATION
  Report Type: Spontaneous
  Country: US (occurrence: US)
  Receive Date: 20130822
  Receipt Date: 20131010
  Transmission Date: 20140711
  Serious: Yes (Hospitalization, Other)
  Sender: FDA-Public Use
  Company Number: US-PFIZER INC-2013243153

PATIENT
  Age: 73 Year
  Sex: Female
  Weight: 59.86 kg

DRUGS (3)
  1. LYRICA [Suspect]
     Indication: HERPES ZOSTER
     Dosage: 50 MG, 3X/DAY
     Route: 048
     Dates: start: 2006
  2. TRAMADOL [Concomitant]
     Indication: PAIN
     Dosage: UNK
  3. PRILOSEC [Concomitant]
     Indication: GASTRIC DISORDER
     Dosage: UNK

REACTIONS (2)
  - Pneumonia [Unknown]
  - Chronic obstructive pulmonary disease [Unknown]
